FAERS Safety Report 9833133 (Version 3)
Quarter: 2014Q1

REPORT INFORMATION
  Report Type: Spontaneous
  Country: BR (occurrence: BR)
  Receive Date: 20140121
  Receipt Date: 20140218
  Transmission Date: 20141002
  Serious: Yes (Other)
  Sender: FDA-Public Use
  Company Number: BR-PFIZER INC-2014016786

PATIENT
  Sex: Female

DRUGS (1)
  1. LYRICA [Suspect]
     Indication: FIBROMYALGIA
     Dosage: UNK
     Route: 048
     Dates: start: 20140111, end: 20140114

REACTIONS (18)
  - Urinary retention [Unknown]
  - Eye swelling [Unknown]
  - Throat tightness [Unknown]
  - Oedema mouth [Unknown]
  - Swelling face [Unknown]
  - Gait disturbance [Unknown]
  - Dyspnoea [Unknown]
  - Depression [Not Recovered/Not Resolved]
  - Restlessness [Unknown]
  - Panic disorder [Not Recovered/Not Resolved]
  - Groin pain [Unknown]
  - Pain in extremity [Unknown]
  - Dry mouth [Not Recovered/Not Resolved]
  - Thirst [Unknown]
  - Crying [Unknown]
  - Cough [Not Recovered/Not Resolved]
  - Malaise [Unknown]
  - Fear of death [Unknown]
